FAERS Safety Report 20677724 (Version 1)
Quarter: 2022Q2

REPORT INFORMATION
  Report Type: Spontaneous
  Country: DE (occurrence: DE)
  Receive Date: 20220406
  Receipt Date: 20220406
  Transmission Date: 20220721
  Serious: Yes (Other)
  Sender: FDA-Public Use
  Company Number: DE-NOVARTISPH-NVSC2022DE076074

PATIENT
  Age: 55 Year
  Sex: Male

DRUGS (4)
  1. CARBOPLATIN [Suspect]
     Active Substance: CARBOPLATIN
     Indication: Pleural mesothelioma
     Dosage: UNK
     Route: 065
     Dates: start: 20190513, end: 20190925
  2. CARBOPLATIN [Suspect]
     Active Substance: CARBOPLATIN
     Dosage: 360 MG, Q3W
     Route: 065
  3. GEMCITABINE [Suspect]
     Active Substance: GEMCITABINE
     Indication: Pleural mesothelioma
     Dosage: 360 MG, Q3W
     Route: 065
  4. GEMCITABINE [Suspect]
     Active Substance: GEMCITABINE
     Dosage: UNK
     Route: 065
     Dates: start: 20190513, end: 20190925

REACTIONS (1)
  - Malignant neoplasm progression [Unknown]

NARRATIVE: CASE EVENT DATE: 20190901
